FAERS Safety Report 13319215 (Version 1)
Quarter: 2017Q1

REPORT INFORMATION
  Report Type: Spontaneous
  Country: JP (occurrence: JP)
  Receive Date: 20170310
  Receipt Date: 20170310
  Transmission Date: 20170428
  Serious: Yes (Other)
  Sender: FDA-Public Use
  Company Number: JP-GUERBET LLC-1064100

PATIENT
  Age: 54 Year
  Sex: Male
  Weight: 109.6 kg

DRUGS (2)
  1. HISTOACRYL [Concomitant]
     Active Substance: ENBUCRILATE
  2. LIPIODOL [Suspect]
     Active Substance: ETHIODIZED OIL
     Indication: THERAPEUTIC EMBOLISATION

REACTIONS (3)
  - Off label use [Unknown]
  - Hepatic function abnormal [Recovered/Resolved]
  - Sepsis [Recovering/Resolving]
